FAERS Safety Report 14937317 (Version 1)
Quarter: 2018Q2

REPORT INFORMATION
  Report Type: Report from Study
  Country: DE (occurrence: DE)
  Receive Date: 20180525
  Receipt Date: 20180525
  Transmission Date: 20180711
  Serious: Yes (Hospitalization, Other)
  Sender: FDA-Public Use
  Company Number: DE-TEVA-2018-DE-896358

PATIENT
  Age: 67 Year
  Sex: Male
  Weight: 91 kg

DRUGS (18)
  1. ABRAXANE [Suspect]
     Active Substance: PACLITAXEL
     Indication: NON-SMALL CELL LUNG CANCER
     Dosage: 100 MG/M2 DAILY;
     Route: 041
     Dates: start: 20170125
  2. ABRAXANE [Suspect]
     Active Substance: PACLITAXEL
     Route: 041
     Dates: start: 20161124
  3. ABRAXANE [Suspect]
     Active Substance: PACLITAXEL
     Dosage: 100 MG/M2 DAILY;
     Route: 041
     Dates: start: 20170315, end: 20170329
  4. NOVALGIN (METAMIZOLE SODIUM) [Concomitant]
     Active Substance: METAMIZOLE SODIUM
     Indication: RIB FRACTURE
     Route: 048
     Dates: start: 20170329
  5. AMOCLAV [Concomitant]
     Active Substance: AMOXICILLIN\CLAVULANATE POTASSIUM
     Indication: PYREXIA
     Dosage: DAILY DOSE: 1750 MG MILLIGRAM(S) EVERY DAY
     Route: 048
     Dates: start: 20161206, end: 20161213
  6. ELIQUIS [Concomitant]
     Active Substance: APIXABAN
     Indication: PROPHYLAXIS
     Dosage: DAILY DOSE: 5 MG MILLIGRAM(S) EVERY DAY
     Route: 048
     Dates: start: 20161221, end: 20161221
  7. VENLAFAXIN [Concomitant]
     Active Substance: VENLAFAXINE HYDROCHLORIDE
     Indication: PROPHYLAXIS
     Dosage: 11.25 MILLIGRAM DAILY;
     Route: 048
  8. DUODART [Concomitant]
     Active Substance: DUTASTERIDE\TAMSULOSIN
     Indication: PROPHYLAXIS
     Dosage: .5 MILLIGRAM DAILY;
     Route: 048
  9. TOREM [Concomitant]
     Active Substance: TORSEMIDE
     Indication: PLEURAL EFFUSION
     Dosage: 10 MILLIGRAM DAILY;
     Route: 048
     Dates: start: 20161214
  10. SEVREDOL [Concomitant]
     Active Substance: MORPHINE
     Indication: PROPHYLAXIS
     Route: 058
     Dates: start: 20170224
  11. ABRAXANE [Suspect]
     Active Substance: PACLITAXEL
     Dosage: 100 MG/M2 DAILY;
     Route: 041
     Dates: start: 20170222
  12. LEVOFLOXACIN. [Concomitant]
     Active Substance: LEVOFLOXACIN
     Indication: PYREXIA
     Dosage: 1000 MILLIGRAM DAILY; 1000 MILLIGRAM
     Route: 048
     Dates: start: 20170225, end: 20170302
  13. TAVOR (LORAZEPAM) [Concomitant]
     Active Substance: LORAZEPAM
     Indication: PANIC ATTACK
     Route: 048
     Dates: start: 20161206
  14. ERYPO [Concomitant]
     Indication: PROPHYLAXIS
     Dosage: 30 IU (INTERNATIONAL UNIT) DAILY;
     Route: 058
     Dates: start: 20170118, end: 20170201
  15. CARBOPLATIN. [Suspect]
     Active Substance: CARBOPLATIN
     Indication: NON-SMALL CELL LUNG CANCER
     Dosage: 5 MG*MIN/ML
     Route: 041
     Dates: start: 20161124, end: 20170315
  16. NEBIVOLOL. [Concomitant]
     Active Substance: NEBIVOLOL
     Indication: PROPHYLAXIS
     Dosage: 10 MILLIGRAM DAILY;
     Route: 048
  17. VALORON [Concomitant]
     Active Substance: TILIDINE HYDROCHLORIDE
     Indication: RIB FRACTURE
     Dosage: 2 DOSAGE FORMS DAILY; 2 DOSAGE FORMS
     Route: 048
     Dates: start: 20170329
  18. BISOPROLOL [Concomitant]
     Active Substance: BISOPROLOL
     Indication: HYPERTONIA
     Dosage: 2.5 MILLIGRAM DAILY; DAILY DOSE: 2.5 MG MILLIGRAM(S) EVERY DAY
     Route: 048

REACTIONS (5)
  - Haemoptysis [Recovered/Resolved]
  - Leukopenia [Not Recovered/Not Resolved]
  - Thrombocytopenia [Not Recovered/Not Resolved]
  - Syncope [Recovered/Resolved]
  - Pyrexia [Recovered/Resolved]

NARRATIVE: CASE EVENT DATE: 20170218
